FAERS Safety Report 13273490 (Version 3)
Quarter: 2025Q1

REPORT INFORMATION
  Report Type: Report from Study
  Country: US (occurrence: US)
  Receive Date: 20170227
  Receipt Date: 20250217
  Transmission Date: 20250409
  Serious: No
  Sender: TAKEDA
  Company Number: US-TAKEDA-2017TUS003849

PATIENT
  Sex: Female
  Weight: 51.701 kg

DRUGS (10)
  1. VEDOLIZUMAB [Suspect]
     Active Substance: VEDOLIZUMAB
     Indication: Crohn^s disease
     Dates: start: 20161129, end: 20161129
  2. VEDOLIZUMAB [Suspect]
     Active Substance: VEDOLIZUMAB
     Dates: start: 20161210, end: 20161210
  3. VEDOLIZUMAB [Suspect]
     Active Substance: VEDOLIZUMAB
     Dates: start: 20170110, end: 20170110
  4. CORTENEMA [Concomitant]
     Active Substance: HYDROCORTISONE
  5. METAMUCIL [Concomitant]
     Active Substance: PLANTAGO SEED
  6. ESTRADIOL [Concomitant]
     Active Substance: ESTRADIOL
  7. LUNESTA [Concomitant]
     Active Substance: ESZOPICLONE
  8. LOSARTAN [Concomitant]
     Active Substance: LOSARTAN
  9. FOLIC ACID [Concomitant]
     Active Substance: FOLIC ACID
  10. FLUOXETINE HYDROCHLORIDE [Concomitant]
     Active Substance: FLUOXETINE HYDROCHLORIDE

REACTIONS (2)
  - No adverse event [Unknown]
  - Inappropriate schedule of product administration [Unknown]
